FAERS Safety Report 7943186-4 (Version None)
Quarter: 2011Q4

REPORT INFORMATION
  Report Type: 
  Country: None (occurrence: None)
  Receive Date: 20111128
  Receipt Date: 20111118
  Transmission Date: 20120403
  Serious: Yes (Hospitalization, Other)
  Sender: FDA-Public Use
  Company Number: PHHO2011NL02695

PATIENT
  Sex: Male
  Weight: 87.8 kg

DRUGS (10)
  1. MYFORTIC [Suspect]
     Indication: RENAL TRANSPLANT
     Dosage: 720 MG, BID
     Route: 048
     Dates: start: 20101128
  2. STEROIDS NOS [Suspect]
     Dosage: 7.5 MG, QD
     Dates: start: 20101124
  3. HYDROCHLOROTHIAZIDE [Suspect]
     Indication: HYPERTENSION
     Dosage: 12.5 MG, QD
     Dates: start: 20111017, end: 20111017
  4. COTRIM [Suspect]
     Dosage: 900 MG, QD
     Dates: start: 20101127, end: 20110126
  5. PERINDOPRIL ERBUMINE [Suspect]
     Dosage: 8 MG, QD
     Dates: start: 20111017, end: 20111017
  6. VALGANCICLOVIR [Suspect]
     Indication: PROPHYLAXIS
     Dosage: 480 MG, QD
     Dates: start: 20100128, end: 20110126
  7. CERTICAN [Suspect]
     Indication: RENAL TRANSPLANT
     Dosage: 3.5 MG, BID
     Route: 048
     Dates: start: 20110202
  8. ZANTAC [Suspect]
     Indication: PROPHYLAXIS
     Dosage: 150 MG, QD
     Dates: start: 20101124, end: 20110126
  9. STEROIDS NOS [Suspect]
     Dosage: 15 MG, UNK
     Route: 048
  10. FLUVACCIN [Suspect]

REACTIONS (7)
  - BLOOD CREATININE INCREASED [None]
  - GASTROINTESTINAL INFECTION [None]
  - FEBRILE NEUTROPENIA [None]
  - PYREXIA [None]
  - HYPOKALAEMIA [None]
  - VIRAL INFECTION [None]
  - MOUTH ULCERATION [None]
